FAERS Safety Report 25645652 (Version 1)
Quarter: 2025Q3

REPORT INFORMATION
  Report Type: Spontaneous
  Country: US (occurrence: None)
  Receive Date: 20250804
  Receipt Date: 20250804
  Transmission Date: 20251020
  Serious: Yes (Other)
  Sender: FDA-CTU
  Company Number: None

PATIENT
  Age: 38 Year
  Sex: Male
  Weight: 74.25 kg

DRUGS (1)
  1. NEUTROGENA ULTRA SHEER [Suspect]
     Active Substance: AVOBENZONE\HOMOSALATE\OCTISALATE\OCTOCRYLENE\OXYBENZONE
     Indication: Prophylaxis against solar radiation
     Dates: start: 20250803, end: 20250803

REACTIONS (5)
  - Eye irritation [None]
  - Nasal congestion [None]
  - Eye swelling [None]
  - Eye pain [None]
  - Impaired driving ability [None]

NARRATIVE: CASE EVENT DATE: 20250803
